FAERS Safety Report 25139686 (Version 1)
Quarter: 2025Q1

REPORT INFORMATION
  Report Type: Spontaneous
  Country: US (occurrence: US)
  Receive Date: 20250331
  Receipt Date: 20250331
  Transmission Date: 20250408
  Serious: Yes (Other)
  Sender: ALEXION PHARMACEUTICALS
  Company Number: US-AstraZeneca-CH-00834542AP

PATIENT

DRUGS (1)
  1. BYDUREON BCISE [Suspect]
     Active Substance: EXENATIDE
     Dosage: 2 MILLIGRAM, QW
     Route: 065

REACTIONS (9)
  - Metastases to liver [Unknown]
  - Metastases to skin [Unknown]
  - Urethral cancer [Unknown]
  - Metastases to spine [Unknown]
  - Metastases to prostate [Unknown]
  - Bladder cancer [Unknown]
  - Injury associated with device [Unknown]
  - Device delivery system issue [Unknown]
  - Incorrect dose administered [Unknown]
